FAERS Safety Report 14232369 (Version 1)
Quarter: 2017Q4

REPORT INFORMATION
  Report Type: Report from Study
  Country: CA (occurrence: CA)
  Receive Date: 20171128
  Receipt Date: 20171128
  Transmission Date: 20180321
  Serious: Yes (Other)
  Sender: FDA-Public Use
  Company Number: PHHY2017CA153063

PATIENT
  Age: 55 Year
  Sex: Male

DRUGS (5)
  1. PREDNISONE. [Concomitant]
     Active Substance: PREDNISONE
     Indication: CHRONIC SPONTANEOUS URTICARIA
     Dosage: 10 DF, QD
     Route: 048
     Dates: start: 20170704
  2. ZANTAC [Concomitant]
     Active Substance: RANITIDINE HYDROCHLORIDE
     Indication: CHRONIC SPONTANEOUS URTICARIA
     Dosage: 1 DF, BID
     Route: 048
     Dates: start: 201705, end: 201707
  3. MONTELUKAST [Suspect]
     Active Substance: MONTELUKAST SODIUM
     Indication: CHRONIC SPONTANEOUS URTICARIA
     Dosage: 1 DF, QD
     Route: 048
     Dates: start: 20170621
  4. ATARAX [Concomitant]
     Active Substance: HYDROXYZINE HYDROCHLORIDE
     Indication: CHRONIC SPONTANEOUS URTICARIA
     Dosage: 1 DF, PRN
     Route: 048
     Dates: start: 201705, end: 201707
  5. ALLEGRA [Concomitant]
     Active Substance: FEXOFENADINE HYDROCHLORIDE
     Indication: CHRONIC SPONTANEOUS URTICARIA
     Dosage: 1 DF, TID
     Route: 048
     Dates: start: 201706

REACTIONS (6)
  - Chronic spontaneous urticaria [Not Recovered/Not Resolved]
  - Swelling [Not Recovered/Not Resolved]
  - Angioedema [Unknown]
  - Rash macular [Unknown]
  - Pigmentation disorder [Unknown]
  - Disease progression [Not Recovered/Not Resolved]

NARRATIVE: CASE EVENT DATE: 201711
